FAERS Safety Report 8152445 (Version 3)
Quarter: 2015Q2

REPORT INFORMATION
  Report Type: Report from Study
  Country: US (occurrence: US)
  Receive Date: 20110922
  Receipt Date: 20150508
  Transmission Date: 20150821
  Serious: No
  Sender: FDA-Public Use
  Company Number: US-ASTRAZENECA-2010SE41711

PATIENT
  Age: 59 Year
  Sex: Female
  Weight: 62.1 kg

DRUGS (15)
  1. CRESTOR [Suspect]
     Active Substance: ROSUVASTATIN CALCIUM
     Dosage: AFTER LUNCH
     Route: 048
  2. NEXIUM [Suspect]
     Active Substance: ESOMEPRAZOLE MAGNESIUM
     Indication: GASTRIC DISORDER
     Route: 048
  3. OMEPRAZOLE. [Suspect]
     Active Substance: OMEPRAZOLE
     Route: 048
  4. ZOLOFT [Concomitant]
     Active Substance: SERTRALINE HYDROCHLORIDE
     Indication: ANXIETY DISORDER
  5. CRESTOR [Suspect]
     Active Substance: ROSUVASTATIN CALCIUM
     Dosage: AT NIGHT
     Route: 048
  6. SYNTHROID [Concomitant]
     Active Substance: LEVOTHYROXINE SODIUM
     Indication: THYROID DISORDER
  7. SEROQUEL [Suspect]
     Active Substance: QUETIAPINE FUMARATE
     Indication: SLEEP DISORDER
     Route: 048
     Dates: start: 201001, end: 201010
  8. ZOLOFT [Concomitant]
     Active Substance: SERTRALINE HYDROCHLORIDE
     Indication: ANXIETY DISORDER
  9. KLONOPIN [Concomitant]
     Active Substance: CLONAZEPAM
     Indication: NERVE INJURY
  10. SEROQUEL [Suspect]
     Active Substance: QUETIAPINE FUMARATE
     Indication: MOOD SWINGS
     Route: 048
     Dates: start: 201001, end: 201010
  11. NEURONTIN [Concomitant]
     Active Substance: GABAPENTIN
     Indication: NERVE INJURY
     Dates: start: 2008
  12. CLONAZEPAM. [Concomitant]
     Active Substance: CLONAZEPAM
  13. NEURONTIN [Concomitant]
     Active Substance: GABAPENTIN
     Indication: NERVE INJURY
  14. KLONOPIN [Concomitant]
     Active Substance: CLONAZEPAM
     Indication: NERVE INJURY
     Dosage: 0.5 MG
  15. THYROID MEDICATION [Concomitant]
     Active Substance: UNSPECIFIED INGREDIENT
     Indication: THYROID DISORDER

REACTIONS (18)
  - Stress [Unknown]
  - Off label use [Unknown]
  - Memory impairment [Unknown]
  - Limb injury [Unknown]
  - Headache [Unknown]
  - Anxiety [Unknown]
  - Adverse event [Unknown]
  - Drug ineffective [Unknown]
  - Bone pain [Unknown]
  - Nerve injury [Unknown]
  - Somnolence [Unknown]
  - Feeling cold [Unknown]
  - Night sweats [Unknown]
  - Vomiting [Unknown]
  - Nausea [Unknown]
  - Intentional product misuse [Unknown]
  - Fatigue [Unknown]
  - Insomnia [Unknown]
